FAERS Safety Report 14651275 (Version 2)
Quarter: 2018Q2

REPORT INFORMATION
  Report Type: Spontaneous
  Country: US (occurrence: US)
  Receive Date: 20180316
  Receipt Date: 20180413
  Transmission Date: 20180711
  Serious: No
  Sender: FDA-Public Use
  Company Number: US-ELI_LILLY_AND_COMPANY-US201803004732

PATIENT
  Age: 60 Year
  Sex: Female

DRUGS (1)
  1. TRULICITY [Suspect]
     Active Substance: DULAGLUTIDE
     Indication: PRODUCT USED FOR UNKNOWN INDICATION
     Dosage: 0.75 MG, UNKNOWN
     Route: 058
     Dates: start: 20180309

REACTIONS (5)
  - Injection site erythema [Recovered/Resolved]
  - Weight decreased [Unknown]
  - Eructation [Unknown]
  - Decreased appetite [Unknown]
  - Eating disorder [Unknown]

NARRATIVE: CASE EVENT DATE: 20180309
